FAERS Safety Report 4727953-6 (Version None)
Quarter: 2005Q3

REPORT INFORMATION
  Report Type: 
  Country: None (occurrence: None)
  Receive Date: 20050725
  Receipt Date: 20050324
  Transmission Date: 20060218
  Serious: No
  Sender: FDA-Public Use
  Company Number: USA050394020

PATIENT
  Age: 11 Year
  Sex: Female
  Weight: 64 kg

DRUGS (1)
  1. STRATTERA [Suspect]
     Indication: ATTENTION DEFICIT/HYPERACTIVITY DISORDER
     Dosage: 40 MG/2 DAY
     Dates: start: 20050303

REACTIONS (5)
  - AGITATION [None]
  - FEELING ABNORMAL [None]
  - HYPOGEUSIA [None]
  - NERVOUSNESS [None]
  - SENSORY LOSS [None]
